FAERS Safety Report 18805502 (Version 2)
Quarter: 2021Q3

REPORT INFORMATION
  Report Type: Report from Study
  Country: None (occurrence: BR)
  Receive Date: 20210129
  Receipt Date: 20210825
  Transmission Date: 20211014
  Serious: Yes (Other)
  Sender: FDA-Public Use
  Company Number: BR-ABBVIE-21P-020-3750132-00

PATIENT
  Sex: Male
  Weight: 90 kg

DRUGS (4)
  1. DEPAKOTE ER [Suspect]
     Active Substance: DIVALPROEX SODIUM
     Indication: SEIZURE
     Dosage: DAILY DOSE: MORNING/NIGHT (FORM STRENGTH NOT SPECIFIED); 2 TABLETS
     Route: 048
     Dates: start: 202010, end: 202010
  2. DEPAKOTE ER [Suspect]
     Active Substance: DIVALPROEX SODIUM
     Dosage: DAILY DOSE: 1250 MG (2 TABLETS OF 500MG AT NIGHT AND 1 TABLET OF 250MG AT NIGHT)
     Route: 048
     Dates: start: 202010
  3. QUETIAPINE FUMARATE. [Concomitant]
     Active Substance: QUETIAPINE FUMARATE
     Indication: SLEEP DISORDER
     Dosage: DAILY DOSE: ADMINISTERED AT 10AM; STARTED AROUND SAME TIME OF DEPAKOTE ER
     Route: 048
  4. QUETIAPINE FUMARATE. [Concomitant]
     Active Substance: QUETIAPINE FUMARATE
     Indication: SLEEP DISORDER
     Dosage: DAILY DOSE: ADMINISTERED MORNING; STARTED AROUND SAME TIME OF DEPAKOTE ER
     Route: 048

REACTIONS (10)
  - Food craving [Unknown]
  - Abdominal discomfort [Unknown]
  - Weight increased [Unknown]
  - Depression [Unknown]
  - Thrombosis [Unknown]
  - Hip fracture [Unknown]
  - Off label use [Unknown]
  - Product use issue [Unknown]
  - Fibroma [Unknown]
  - Product dispensing error [Unknown]
